FAERS Safety Report 8315639-0 (Version None)
Quarter: 2012Q2

REPORT INFORMATION
  Report Type: 
  Country: None (occurrence: None)
  Receive Date: 20120426
  Receipt Date: 20120416
  Transmission Date: 20120825
  Serious: Yes (Other)
  Sender: FDA-Public Use
  Company Number: US-ROCHE-1061022

PATIENT
  Age: 10 Year
  Sex: Female

DRUGS (20)
  1. CYCLOPHOSPHAMIDE [Suspect]
     Dosage: REGIMEN COPADM1, FOR 6 DOSES
  2. METHOTREXATE [Suspect]
     Dosage: REGIMEN COPADM2
  3. RITUXIMAB [Suspect]
     Indication: BURKITT'S LYMPHOMA
     Dosage: EVERY 2-4 WEEKS FOR 5 TOTAL DOSES, STARTING BETWEEN COPADM1 AND COPADM2
  4. CYCLOPHOSPHAMIDE [Suspect]
     Indication: BURKITT'S LYMPHOMA
     Dosage: REGIMEN COP
  5. VINCRISTINE [Suspect]
     Dosage: REGIMEN COPADM1
  6. HYDROCORTISONE [Suspect]
     Dosage: REGIMEN CYM1, METHOTREXATE/HYDROCORTISONE ONCE AND CYTARABINE/HYDROCORTISONE ONCE
     Route: 037
  7. PREDNISOLONE [Suspect]
     Dosage: REGIMEN COPADM1, FOR 5 DAYS THEN TAPER OVER 3 DAYS
  8. HYDROCORTISONE [Suspect]
     Dosage: REGIMEN COPADM2, METHOTREXATE/HYDROCORTISONE TWICE
     Route: 037
  9. METHOTREXATE [Suspect]
     Indication: BURKITT'S LYMPHOMA
     Dosage: REGIMEN COPADM1,
  10. DOXORUBICIN HCL [Suspect]
     Dosage: REGIMEN COPADM2
  11. HYDROCORTISONE [Suspect]
     Indication: BURKITT'S LYMPHOMA
     Dosage: REGIMEN COP, METHOTREXATE/HYDROCORTISONE
     Route: 037
  12. HYDROCORTISONE [Suspect]
     Dosage: REGIMEN COPADM1, METHOTREXATE/HYDROCORTISONE TWICE
     Route: 037
  13. PREDNISOLONE [Suspect]
     Dosage: REGIMEN COPADM2, FOR 5 DAYS THEN TAPER OVER 3 DAYS
  14. METHOTREXATE [Suspect]
     Dosage: REGIMEN CYM1
  15. DOXORUBICIN HCL [Suspect]
     Indication: BURKITT'S LYMPHOMA
     Dosage: REGIMEN COPADM1
  16. CYCLOPHOSPHAMIDE [Suspect]
     Dosage: REGIMEN COPADM2, FOR 6 DOSES
  17. VINCRISTINE [Suspect]
     Indication: BURKITT'S LYMPHOMA
     Dosage: REGIMEN COP
  18. VINCRISTINE [Suspect]
     Dosage: REGIMEN COPADM2
  19. PREDNISOLONE [Suspect]
     Indication: BURKITT'S LYMPHOMA
     Dosage: REGIMEN COP, FOR 7 DAYS
  20. CYTARABINE [Suspect]
     Indication: BURKITT'S LYMPHOMA
     Dosage: REGIMEN CYM1,CONTINUOUS INFUSION DAILY FOR 5 DAYS

REACTIONS (5)
  - HYPERTENSION [None]
  - FEBRILE NEUTROPENIA [None]
  - SEPSIS [None]
  - RENAL FAILURE [None]
  - ABDOMINAL COMPARTMENT SYNDROME [None]
